FAERS Safety Report 5515451-1 (Version None)
Quarter: 2007Q4

REPORT INFORMATION
  Report Type: 
  Country: None (occurrence: None)
  Receive Date: 20071113
  Receipt Date: 20070410
  Transmission Date: 20080405
  Serious: No
  Sender: FDA-Public Use
  Company Number: A0640273A

PATIENT
  Age: 60 Year
  Sex: Male

DRUGS (8)
  1. COREG [Suspect]
     Dosage: 12.5MG TWICE PER DAY
     Route: 048
  2. COUMADIN [Concomitant]
  3. INSULIN [Concomitant]
  4. ENALAPRIL MALEATE [Concomitant]
  5. DILACOR XR [Concomitant]
  6. GLUCOPHAGE [Concomitant]
  7. POTASSIUM CHLORIDE [Concomitant]
  8. LANTUS [Concomitant]

REACTIONS (8)
  - ARRHYTHMIA [None]
  - BLOOD GLUCOSE INCREASED [None]
  - CARDIAC DISORDER [None]
  - CHEST PAIN [None]
  - CONDITION AGGRAVATED [None]
  - PALPITATIONS [None]
  - PERIPHERAL COLDNESS [None]
  - VISION BLURRED [None]
